FAERS Safety Report 7214701-3 (Version None)
Quarter: 2011Q1

REPORT INFORMATION
  Report Type: 
  Country: None (occurrence: None)
  Receive Date: 20110107
  Receipt Date: 20091202
  Transmission Date: 20110831
  Serious: No
  Sender: FDA-Public Use
  Company Number: A0832878A

PATIENT
  Age: 12 Year
  Sex: Female

DRUGS (3)
  1. LOVAZA [Suspect]
     Dosage: 1CAP TWICE PER DAY
     Route: 048
     Dates: start: 20091104, end: 20091118
  2. MULTI-VITAMIN [Concomitant]
  3. XYZAL [Concomitant]

REACTIONS (1)
  - URTICARIA [None]
